FAERS Safety Report 7437384-6 (Version None)
Quarter: 2011Q2

REPORT INFORMATION
  Report Type: 
  Country: None (occurrence: None)
  Receive Date: 20110426
  Receipt Date: 20110425
  Transmission Date: 20111010
  Serious: Yes (Hospitalization)
  Sender: FDA-Public Use
  Company Number: US-ABBOTT-11P-163-0721475-00

PATIENT
  Age: 30 Year
  Sex: Female

DRUGS (2)
  1. HUMIRA [Suspect]
     Indication: CROHN'S DISEASE
     Dates: start: 20101101, end: 20101101
  2. HUMIRA [Suspect]
     Dates: start: 20100101

REACTIONS (3)
  - RECTAL PROLAPSE [None]
  - CROHN'S DISEASE [None]
  - GASTROINTESTINAL ULCER [None]
